FAERS Safety Report 5151259-7 (Version None)
Quarter: 2006Q4

REPORT INFORMATION
  Report Type: 
  Country: None (occurrence: None)
  Receive Date: 20061114
  Receipt Date: 20061114
  Transmission Date: 20070319
  Serious: No
  Sender: FDA-Public Use
  Company Number: None

PATIENT
  Age: 49 Year
  Sex: Female
  Weight: 81.6475 kg

DRUGS (1)
  1. ACETAMINOPHEN [Suspect]
     Indication: TEMPOROMANDIBULAR JOINT SYNDROME
     Dosage: 1 TAB   AT NIGHT AS NEEDED  PO
     Route: 048
     Dates: start: 20061001, end: 20061022

REACTIONS (5)
  - CHILLS [None]
  - MALAISE [None]
  - NAUSEA [None]
  - TONGUE BLACK HAIRY [None]
  - VOMITING [None]
